FAERS Safety Report 16463267 (Version 4)
Quarter: 2019Q4

REPORT INFORMATION
  Report Type: Spontaneous
  Country: US (occurrence: US)
  Receive Date: 20190621
  Receipt Date: 20191122
  Transmission Date: 20200122
  Serious: Yes (Death, Other)
  Sender: FDA-Public Use
  Company Number: US-ASTRAZENECA-2019SE09350

PATIENT
  Age: 66 Year
  Sex: Female

DRUGS (40)
  1. NEXIUM [Suspect]
     Active Substance: ESOMEPRAZOLE MAGNESIUM
     Route: 048
  2. LASIX [Concomitant]
     Active Substance: FUROSEMIDE
  3. XANAX [Concomitant]
     Active Substance: ALPRAZOLAM
  4. SPIRIVA [Concomitant]
     Active Substance: TIOTROPIUM BROMIDE MONOHYDRATE
  5. ALLOPURINOL. [Concomitant]
     Active Substance: ALLOPURINOL
     Indication: GOUT
  6. AMITRIPTYLINE [Concomitant]
     Active Substance: AMITRIPTYLINE
     Indication: MENTAL DISORDER
  7. METOPROLOL. [Concomitant]
     Active Substance: METOPROLOL
     Indication: HYPERTENSION
  8. PREVACID [Suspect]
     Active Substance: LANSOPRAZOLE
     Route: 065
     Dates: start: 20041106
  9. TOPAMAX [Concomitant]
     Active Substance: TOPIRAMATE
  10. HUMALOG [Concomitant]
     Active Substance: INSULIN LISPRO
  11. FUROSEMIDE. [Concomitant]
     Active Substance: FUROSEMIDE
     Indication: FLUID RETENTION
  12. ZITHROMAX [Concomitant]
     Active Substance: AZITHROMYCIN DIHYDRATE
  13. AUGMENTIN [Concomitant]
     Active Substance: AMOXICILLIN\CLAVULANATE POTASSIUM
  14. SIMVASTATIN. [Concomitant]
     Active Substance: SIMVASTATIN
  15. CALCITROL [Concomitant]
  16. ENDOCET [Concomitant]
     Active Substance: ACETAMINOPHEN\OXYCODONE HYDROCHLORIDE
  17. ESTRADIOL. [Concomitant]
     Active Substance: ESTRADIOL
  18. CLONIDINE. [Concomitant]
     Active Substance: CLONIDINE
     Indication: HYPERTENSION
  19. GABAPENTIN. [Concomitant]
     Active Substance: GABAPENTIN
  20. LOPRESSOR [Concomitant]
     Active Substance: METOPROLOL TARTRATE
  21. PRILOSEC [Suspect]
     Active Substance: OMEPRAZOLE MAGNESIUM
     Indication: GASTROOESOPHAGEAL REFLUX DISEASE
     Route: 048
     Dates: start: 2011
  22. PROTONIX [Suspect]
     Active Substance: PANTOPRAZOLE SODIUM
     Indication: GASTROOESOPHAGEAL REFLUX DISEASE
     Route: 065
     Dates: start: 2012
  23. NEURONTIN [Concomitant]
     Active Substance: GABAPENTIN
  24. HYDRALAZINE [Concomitant]
     Active Substance: HYDRALAZINE HYDROCHLORIDE
  25. LANTUS [Concomitant]
     Active Substance: INSULIN GLARGINE
  26. LEVAQUIN [Concomitant]
     Active Substance: LEVOFLOXACIN
  27. CIPRO [Concomitant]
     Active Substance: CIPROFLOXACIN HYDROCHLORIDE
  28. ZOLOFT [Concomitant]
     Active Substance: SERTRALINE HYDROCHLORIDE
  29. NORVASC [Concomitant]
     Active Substance: AMLODIPINE BESYLATE
  30. PRILOSEC [Suspect]
     Active Substance: OMEPRAZOLE MAGNESIUM
     Indication: GASTROOESOPHAGEAL REFLUX DISEASE
     Dosage: GENERIC
     Route: 065
     Dates: start: 201201, end: 201705
  31. PREDNISONE. [Concomitant]
     Active Substance: PREDNISONE
  32. LISINOPRIL. [Concomitant]
     Active Substance: LISINOPRIL
  33. CEFDINIR. [Concomitant]
     Active Substance: CEFDINIR
  34. ZOCOR [Concomitant]
     Active Substance: SIMVASTATIN
  35. ELAVIL [Concomitant]
     Active Substance: AMITRIPTYLINE HYDROCHLORIDE
  36. ISOSORBIDE. [Concomitant]
     Active Substance: ISOSORBIDE
  37. LIDODERM [Concomitant]
     Active Substance: LIDOCAINE
  38. FERROUS SULFATE. [Concomitant]
     Active Substance: FERROUS SULFATE
     Indication: IRON DEFICIENCY
  39. ALPRAZOLAM. [Concomitant]
     Active Substance: ALPRAZOLAM
     Indication: ANXIETY
  40. AMLODIPINE [Concomitant]
     Active Substance: AMLODIPINE BESYLATE
     Indication: HYPERTENSION

REACTIONS (6)
  - End stage renal disease [Not Recovered/Not Resolved]
  - Renal injury [Unknown]
  - Chronic kidney disease [Unknown]
  - Hyperparathyroidism secondary [Unknown]
  - Rebound acid hypersecretion [Unknown]
  - Renal failure [Unknown]

NARRATIVE: CASE EVENT DATE: 2011
